FAERS Safety Report 6151475-1 (Version None)
Quarter: 2009Q2

REPORT INFORMATION
  Report Type: 
  Country: None (occurrence: None)
  Receive Date: 20090410
  Receipt Date: 20090401
  Transmission Date: 20091009
  Serious: Yes (Other)
  Sender: FDA-Public Use
  Company Number: ES-ASTRAZENECA-2009AC00994

PATIENT
  Age: 12180 Day
  Sex: Female
  Weight: 112 kg

DRUGS (5)
  1. QUETIAPINE FUMARATE [Suspect]
     Indication: BIPOLAR DISORDER
     Route: 048
     Dates: start: 20050515
  2. QUETIAPINE FUMARATE [Suspect]
     Route: 048
     Dates: start: 20070801
  3. QUETIAPINE FUMARATE [Suspect]
     Route: 048
     Dates: start: 20081001
  4. CLONAZEPAM [Concomitant]
     Indication: BIPOLAR DISORDER
     Route: 048
  5. PALIPERIDONE PALMITATE [Concomitant]
     Dates: start: 20081008, end: 20081016

REACTIONS (3)
  - FAT NECROSIS [None]
  - OEDEMA [None]
  - PRURITUS [None]
